FAERS Safety Report 17213109 (Version 3)
Quarter: 2020Q3

REPORT INFORMATION
  Report Type: Spontaneous
  Country: JP (occurrence: JP)
  Receive Date: 20191230
  Receipt Date: 20200927
  Transmission Date: 20201102
  Serious: Yes (Other)
  Sender: FDA-Public Use
  Company Number: JP-UCBSA-2019006583

PATIENT
  Age: 37 Year
  Sex: Male

DRUGS (9)
  1. XYZAL [Suspect]
     Active Substance: LEVOCETIRIZINE DIHYDROCHLORIDE
     Indication: PRURITUS
     Dosage: UNKNOWN DOSE
     Route: 048
     Dates: start: 20181217, end: 20181227
  2. CLARITH [Concomitant]
     Active Substance: CLARITHROMYCIN
     Indication: PRODUCT USED FOR UNKNOWN INDICATION
     Dosage: UNKNOWN DOSE
  3. PREDONINE [Concomitant]
     Active Substance: PREDNISOLONE
     Indication: PRODUCT USED FOR UNKNOWN INDICATION
     Dosage: UNKNOWN DOSE
  4. DESALEX [Suspect]
     Active Substance: DESLORATADINE
     Indication: PRURITUS
     Dosage: UNKNOWN DOSE
     Dates: start: 20181228, end: 20190106
  5. FLOMOX [CEFCAPENE PIVOXIL HYDROCHLORIDE] [Concomitant]
     Active Substance: CEFCAPENE PIVOXIL HYDROCHLORIDE
     Indication: PRODUCT USED FOR UNKNOWN INDICATION
     Dosage: UNKNOWN DOSE
  6. OLOPATADINE HYDROCHLORIDE. [Suspect]
     Active Substance: OLOPATADINE HYDROCHLORIDE
     Indication: PRURITUS
     Dosage: UNKNOWN DOSE
     Route: 048
     Dates: start: 20190107, end: 20190121
  7. TEPRENONE [Concomitant]
     Active Substance: TEPRENONE
     Indication: PRODUCT USED FOR UNKNOWN INDICATION
     Dosage: UNKNOWN DOSE
  8. NEXIUM [Concomitant]
     Active Substance: ESOMEPRAZOLE MAGNESIUM
     Indication: PRODUCT USED FOR UNKNOWN INDICATION
     Dosage: UNKNOWN DOSE
  9. XYZAL [Suspect]
     Active Substance: LEVOCETIRIZINE DIHYDROCHLORIDE
     Dosage: UNKNOWN DOSE
     Route: 048
     Dates: start: 20181228, end: 20190106

REACTIONS (1)
  - Drug-induced liver injury [Recovering/Resolving]

NARRATIVE: CASE EVENT DATE: 20190120
